FAERS Safety Report 21419405 (Version 2)
Quarter: 2023Q1

REPORT INFORMATION
  Report Type: Spontaneous
  Country: US (occurrence: US)
  Receive Date: 20221006
  Receipt Date: 20230103
  Transmission Date: 20230418
  Serious: Yes (Other)
  Sender: FDA-Public Use
  Company Number: US-BRISTOL-MYERS SQUIBB COMPANY-2022-115141

PATIENT
  Age: 52 Year
  Sex: Male
  Weight: 68.49 kg

DRUGS (1)
  1. NIVOLUMAB [Suspect]
     Active Substance: NIVOLUMAB
     Indication: Lung neoplasm malignant
     Dosage: DOSE : 360MG;     FREQ : EVERY 3 WEEKS?STRENGTH: 240 AND 120 MG VIALS
     Route: 042
     Dates: start: 20220607

REACTIONS (2)
  - Adverse event [Unknown]
  - Intentional product use issue [Unknown]
